FAERS Safety Report 19142201 (Version 1)
Quarter: 2021Q2

REPORT INFORMATION
  Report Type: Spontaneous
  Country: DE (occurrence: DE)
  Receive Date: 20210415
  Receipt Date: 20210415
  Transmission Date: 20210717
  Serious: Yes (Hospitalization)
  Sender: FDA-Public Use
  Company Number: DE-PURDUE-USA-2021-0243709

PATIENT
  Age: 80 Year
  Sex: Male

DRUGS (13)
  1. PALLADONE [Suspect]
     Active Substance: HYDROMORPHONE HYDROCHLORIDE
     Indication: PRODUCT USED FOR UNKNOWN INDICATION
     Dosage: 16 MG, Q12H [16 MG, 1?0?1?0, RETARD?KAPSELN]
     Route: 065
  2. PREGABALIN. [Concomitant]
     Active Substance: PREGABALIN
     Dosage: 200 MG, Q12H [200 MG, 1?0?1?0, KAPSELN]
  3. PANTOPRAZOL                        /01263201/ [Concomitant]
     Active Substance: PANTOPRAZOLE
     Dosage: 20 MG, DAILY [20 MG, 1?0?0?0, TABLETTEN]
  4. LACTULOSE. [Concomitant]
     Active Substance: LACTULOSE
     Dosage: UNK [BEI BEDARF, SIRUP]
  5. ASPIRIN. [Suspect]
     Active Substance: ASPIRIN
     Indication: PRODUCT USED FOR UNKNOWN INDICATION
     Dosage: 100 MG, DAILY [100 MG, 1?0?0?0, TABLETTEN]
     Route: 065
  6. CARVEDILOL. [Concomitant]
     Active Substance: CARVEDILOL
     Dosage: 1.5 DF, DAILY [12.5 MG, 0.5?0?1?0, TABLETTEN]
  7. LEVOTHYROXINE SODIUM. [Concomitant]
     Active Substance: LEVOTHYROXINE SODIUM
     Dosage: 75 MCG, DAILY [75 G, 1?0?0?0, TABLETTEN]
  8. EZETIMIBE AND SIMVASTATIN [Concomitant]
     Active Substance: EZETIMIBE\SIMVASTATIN
     Dosage: 1 DF, DAILY [10/20 MG, 1?0?0?0, TABLETTEN]
  9. TORASEMID [Concomitant]
     Active Substance: TORSEMIDE
     Dosage: 5 MG, Q12H [10 MG, 0.5?0.5?0?0, TABLETTEN]
  10. MAGNESIUM [Concomitant]
     Active Substance: MAGNESIUM
     Dosage: 400 MG, DAILY [400 MG, 1?0?0?0, KAPSELN]
  11. MACROGOL 3350;POTASSIUM;SODIUM BICA/10942801/ [Concomitant]
     Active Substance: POLYETHYLENE GLYCOL 3350\POTASSIUM CHLORIDE\SODIUM BICARBONATE\SODIUM CHLORIDE
     Dosage: 1 DF, DAILY [1?0?0?0, BEUTEL/GRANULAT]
  12. CANDESARTAN. [Concomitant]
     Active Substance: CANDESARTAN
     Dosage: 8 MG, Q12H [8 MG, 1?0?1?0, TABLETTEN]
  13. TAMSULOSIN [Concomitant]
     Active Substance: TAMSULOSIN
     Dosage: 0.4 MG, DAILY [0.4 MG, 0?0?1?0, RETARD?KAPSELN]

REACTIONS (6)
  - General physical health deterioration [Unknown]
  - Dizziness [Unknown]
  - Hyperhidrosis [Unknown]
  - Haemoptysis [Unknown]
  - Anaemia [Unknown]
  - Vomiting [Unknown]
